FAERS Safety Report 6917173-9 (Version None)
Quarter: 2010Q3

REPORT INFORMATION
  Report Type: 
  Country: None (occurrence: None)
  Receive Date: 20100810
  Receipt Date: 20071222
  Transmission Date: 20110219
  Serious: No
  Sender: FDA-Public Use
  Company Number: US-PFIZER INC-2007029060

PATIENT
  Sex: Male
  Weight: 73.48 kg

DRUGS (8)
  1. CELEBREX [Suspect]
     Indication: PAIN
     Dates: start: 20070401
  2. CELEBREX [Suspect]
     Indication: INFLAMMATION
  3. ZOLOFT [Suspect]
     Indication: DEPRESSION
  4. SERTRALINE HYDROCHLORIDE [Suspect]
  5. ZYRTEC-D 12 HOUR [Suspect]
     Indication: INFLUENZA
     Dosage: 5/120 EVERY 12 HOURS
  6. SUDAFED 12 HOUR [Suspect]
     Indication: NASAL CONGESTION
  7. ASACOL [Concomitant]
     Indication: COLITIS
  8. ZANTAC [Concomitant]
     Indication: DYSPEPSIA

REACTIONS (9)
  - ABDOMINAL DISCOMFORT [None]
  - DRUG INEFFECTIVE [None]
  - GLOSSITIS [None]
  - HEADACHE [None]
  - MALAISE [None]
  - PAIN [None]
  - SEDATION [None]
  - TIC [None]
  - TONGUE DISCOLOURATION [None]
